FAERS Safety Report 21141512 (Version 2)
Quarter: 2022Q3

REPORT INFORMATION
  Report Type: Spontaneous
  Country: US (occurrence: US)
  Receive Date: 20220728
  Receipt Date: 20220728
  Transmission Date: 20221026
  Serious: No
  Sender: FDA-Public Use
  Company Number: US-Eisai Medical Research-EC-2022-117827

PATIENT
  Sex: Male

DRUGS (2)
  1. FYCOMPA [Suspect]
     Active Substance: PERAMPANEL
     Indication: Product used for unknown indication
     Dosage: DOSE AND FREQUENCY UNKNOWN
     Route: 048
  2. FYCOMPA [Suspect]
     Active Substance: PERAMPANEL
     Dosage: 8MG FOR 3 DAYS AND 6MG FOR 1 DAY (6MG EVERY 4TH DAY)
     Route: 048

REACTIONS (3)
  - Fatigue [Unknown]
  - Balance disorder [Unknown]
  - Gastrooesophageal reflux disease [Unknown]
